FAERS Safety Report 6187940-0 (Version None)
Quarter: 2009Q2

REPORT INFORMATION
  Report Type: 
  Country: None (occurrence: None)
  Receive Date: 20090513
  Receipt Date: 20090506
  Transmission Date: 20091009
  Serious: Yes (Hospitalization)
  Sender: FDA-Public Use
  Company Number: FR-MERCK-0905FRA00017

PATIENT
  Age: 62 Year
  Sex: Female

DRUGS (12)
  1. JANUVIA [Suspect]
     Indication: TYPE 2 DIABETES MELLITUS
     Route: 048
  2. PRISTINAMYCIN [Suspect]
     Indication: TOOTH EXTRACTION
     Route: 048
     Dates: start: 20081222, end: 20081223
  3. AMOXICILLIN SODIUM [Suspect]
     Indication: TOOTH ABSCESS
     Route: 048
     Dates: start: 20081216, end: 20081222
  4. METRONIDAZOLE [Suspect]
     Indication: TOOTH ABSCESS
     Route: 048
     Dates: start: 20081216, end: 20081222
  5. MOLSIDOMINE [Concomitant]
     Route: 065
  6. ATORVASTATIN CALCIUM [Concomitant]
     Route: 065
  7. METOPROLOL TARTRATE [Concomitant]
     Route: 065
  8. ASPIRIN LYSINE [Concomitant]
     Route: 065
  9. METFORMIN [Concomitant]
     Route: 065
  10. CHLORMADINONE ACETATE [Concomitant]
     Route: 065
  11. ESTRADIOL [Concomitant]
     Route: 065
  12. METRONIDAZOLE AND SPIRAMYCIN [Concomitant]
     Route: 065
     Dates: start: 20081210, end: 20081216

REACTIONS (6)
  - ERYTHEMA [None]
  - GENERALISED ERYTHEMA [None]
  - INFLUENZA [None]
  - RASH PAPULAR [None]
  - RASH PRURITIC [None]
  - RASH PUSTULAR [None]
